FAERS Safety Report 6073271-6 (Version None)
Quarter: 2009Q1

REPORT INFORMATION
  Report Type: 
  Country: None (occurrence: None)
  Receive Date: 20090205
  Receipt Date: 20090120
  Transmission Date: 20090719
  Serious: Yes (Other)
  Sender: FDA-Public Use
  Company Number: 8041865

PATIENT
  Age: 13 Year
  Sex: Female
  Weight: 48.6 kg

DRUGS (3)
  1. KEPPRA [Suspect]
     Indication: MYOCLONIC EPILEPSY
     Dosage: 250 MG 2/D PO
     Route: 048
     Dates: start: 20081021, end: 20081027
  2. KEPPRA [Suspect]
     Indication: MYOCLONIC EPILEPSY
     Dosage: 250 MG 2/D PO
     Route: 048
     Dates: start: 20081002
  3. NEUROFEN [Concomitant]

REACTIONS (5)
  - ABNORMAL BEHAVIOUR [None]
  - SLEEP DISORDER [None]
  - SUICIDAL BEHAVIOUR [None]
  - TENSION [None]
  - TREMOR [None]
